FAERS Safety Report 18234334 (Version 3)
Quarter: 2020Q3

REPORT INFORMATION
  Report Type: Spontaneous
  Country: US (occurrence: US)
  Receive Date: 20200904
  Receipt Date: 20200925
  Transmission Date: 20201103
  Serious: Yes (Other)
  Sender: FDA-Public Use
  Company Number: US-SA-2020SA232657

PATIENT

DRUGS (1)
  1. LANTUS SOLOSTAR [Suspect]
     Active Substance: INSULIN GLARGINE
     Indication: TYPE 2 DIABETES MELLITUS
     Dosage: 60 IU, QD
     Route: 065

REACTIONS (4)
  - Product quality issue [Not Recovered/Not Resolved]
  - Visual impairment [Unknown]
  - Diabetes mellitus inadequate control [Not Recovered/Not Resolved]
  - Intentional product misuse [Unknown]
